FAERS Safety Report 18446354 (Version 1)
Quarter: 2020Q4

REPORT INFORMATION
  Report Type: Spontaneous
  Country: SE (occurrence: SE)
  Receive Date: 20201030
  Receipt Date: 20201030
  Transmission Date: 20210114
  Serious: Yes (Other)
  Sender: FDA-Public Use
  Company Number: SE-BAYER-2020-229375

PATIENT
  Age: 39 Year
  Sex: Female
  Weight: 75 kg

DRUGS (3)
  1. PYRIDOXIN [Concomitant]
     Active Substance: PYRIDOXINE
     Dates: start: 20190905, end: 20200501
  2. KYLEENA [Suspect]
     Active Substance: LEVONORGESTREL
     Indication: CONTRACEPTION
     Dosage: 17.5 ?G PER DAY,  CONTINUOUSLY
     Route: 015
     Dates: start: 20190905, end: 20200820
  3. CITALOPRAM MYLAN [Concomitant]
     Active Substance: CITALOPRAM HYDROBROMIDE
     Dates: start: 20190905, end: 20200701

REACTIONS (4)
  - Anxiety [Recovering/Resolving]
  - Genital burning sensation [Not Recovered/Not Resolved]
  - Depressed mood [Recovering/Resolving]
  - Pruritus genital [Not Recovered/Not Resolved]

NARRATIVE: CASE EVENT DATE: 20191101
